FAERS Safety Report 12924150 (Version 2)
Quarter: 2016Q4

REPORT INFORMATION
  Report Type: Spontaneous
  Country: FR (occurrence: FR)
  Receive Date: 20161108
  Receipt Date: 20161115
  Transmission Date: 20170207
  Serious: Yes (Hospitalization, Other)
  Sender: FDA-Public Use
  Company Number: FR-JNJFOC-20161106282

PATIENT
  Sex: Female

DRUGS (1)
  1. HALDOL [Suspect]
     Active Substance: HALOPERIDOL
     Indication: MENTAL DISORDER
     Route: 048
     Dates: start: 20161019

REACTIONS (1)
  - Purpura [Unknown]
